FAERS Safety Report 6288875-5 (Version None)
Quarter: 2009Q3

REPORT INFORMATION
  Report Type: 
  Country: None (occurrence: None)
  Receive Date: 20090729
  Receipt Date: 20090716
  Transmission Date: 20100115
  Serious: Yes (Other)
  Sender: FDA-Public Use
  Company Number: US-ELI_LILLY_AND_COMPANY-US200906004924

PATIENT
  Age: 50 Year
  Sex: Female

DRUGS (11)
  1. CYMBALTA [Suspect]
     Indication: DEPRESSION
     Dosage: 60 MG, DAILY (1/D)
     Dates: start: 20090421, end: 20090601
  2. ASPIRIN [Concomitant]
     Dosage: 81 MG, DAILY (1/D)
     Route: 048
  3. NEXIUM [Concomitant]
     Dosage: 1 D/F, UNK
  4. REMERON [Concomitant]
     Dosage: 15 MG, EACH EVENING
     Route: 048
     Dates: start: 20090421, end: 20090521
  5. BUSPAR [Concomitant]
     Dosage: 10 MG, 2/D
     Route: 048
     Dates: start: 20090421, end: 20090521
  6. RANITIDINE /00550802/ [Concomitant]
     Dosage: 150 MG, 2/D
     Route: 048
     Dates: start: 20090430, end: 20090530
  7. HYDROCHLOROTHIAZIDE [Concomitant]
     Dosage: 12.5 MG, DAILY (1/D)
     Route: 048
     Dates: start: 20090522, end: 20090622
  8. XANAX [Concomitant]
     Dosage: 0.5 MG, AS NEEDED
     Dates: start: 20090713
  9. ACETAMINOPHEN AND HYDROCODONE BITARTRATE [Concomitant]
     Dosage: 1 D/F, AS NEEDED
     Route: 048
     Dates: start: 20090713
  10. VENTOLIN                                /SCH/ [Concomitant]
     Dosage: 1 D/F, AS NEEDED
     Route: 055
     Dates: start: 20090303, end: 20090403
  11. MECLIZINE HCL [Concomitant]
     Dosage: 25 MG, AS NEEDED
     Route: 048
     Dates: start: 20090421

REACTIONS (3)
  - ASPARTATE AMINOTRANSFERASE INCREASED [None]
  - BLOOD ALKALINE PHOSPHATASE INCREASED [None]
  - JAUNDICE [None]
